FAERS Safety Report 11409999 (Version 2)
Quarter: 2015Q3

REPORT INFORMATION
  Report Type: Report from Study
  Country: US (occurrence: US)
  Receive Date: 20150824
  Receipt Date: 20150903
  Transmission Date: 20151125
  Serious: Yes (Other)
  Sender: FDA-Public Use
  Company Number: US-BIOGENIDEC-2015BI114101

PATIENT
  Age: 55 Year
  Sex: Female

DRUGS (19)
  1. BUDESONIDE. [Concomitant]
     Active Substance: BUDESONIDE
     Route: 055
  2. SIMVASTATIN. [Concomitant]
     Active Substance: SIMVASTATIN
     Route: 048
  3. MELOXICAM. [Concomitant]
     Active Substance: MELOXICAM
     Route: 048
  4. FOLIC ACID. [Concomitant]
     Active Substance: FOLIC ACID
     Route: 048
  5. ERGOCALCIFEROL. [Concomitant]
     Active Substance: ERGOCALCIFEROL
     Route: 048
  6. ALBUTEROL SULFATE. [Concomitant]
     Active Substance: ALBUTEROL SULFATE
     Route: 055
  7. RIVAROXABAN [Concomitant]
     Active Substance: RIVAROXABAN
     Route: 048
  8. FAMOTIDINE. [Concomitant]
     Active Substance: FAMOTIDINE
     Route: 048
  9. AVONEX [Suspect]
     Active Substance: INTERFERON BETA-1A
     Indication: MULTIPLE SCLEROSIS
     Route: 058
     Dates: start: 20141029, end: 2015
  10. BUPROPION HCL [Concomitant]
     Active Substance: BUPROPION HYDROCHLORIDE
     Route: 048
  11. OXYBUTYNIN CHLORIDE. [Concomitant]
     Active Substance: OXYBUTYNIN CHLORIDE
     Route: 048
  12. HCTZ/LISINOPRIL [Concomitant]
     Active Substance: HYDROCHLOROTHIAZIDE\LISINOPRIL
     Route: 048
  13. AMITRIPTYLINE HCL [Concomitant]
     Active Substance: AMITRIPTYLINE
     Route: 048
  14. ASPIRIN ENTERIC COATED [Concomitant]
     Active Substance: ASPIRIN
     Route: 048
  15. ERGOCALCIFEROL (VITAMIN D) [Concomitant]
     Route: 048
  16. AVONEX [Suspect]
     Active Substance: INTERFERON BETA-1A
     Indication: MULTIPLE SCLEROSIS
     Route: 030
     Dates: start: 201410
  17. ALENDRONATE SODIUM. [Concomitant]
     Active Substance: ALENDRONATE SODIUM
  18. DUONEB [Concomitant]
     Active Substance: ALBUTEROL SULFATE\IPRATROPIUM BROMIDE
     Route: 055
  19. WOMENS 50 PLUS MULTI-VITAMIN [Concomitant]
     Route: 048

REACTIONS (9)
  - Seizure [Unknown]
  - Knee operation [Unknown]
  - Liver injury [Not Recovered/Not Resolved]
  - Incorrect route of drug administration [Recovered/Resolved]
  - Renal disorder [Unknown]
  - Drug ineffective [Recovered/Resolved]
  - Postoperative wound infection [Unknown]
  - Multiple sclerosis [Unknown]
  - Syncope [Unknown]

NARRATIVE: CASE EVENT DATE: 20141029
